FAERS Safety Report 23631723 (Version 1)
Quarter: 2024Q1

REPORT INFORMATION
  Report Type: Report from Study
  Country: US (occurrence: US)
  Receive Date: 20240314
  Receipt Date: 20240314
  Transmission Date: 20240409
  Serious: Yes (Death)
  Sender: FDA-Public Use
  Company Number: US-MYLANLABS-2023M1055530

PATIENT
  Sex: Female
  Weight: 64.1 kg

DRUGS (6)
  1. XANAX [Suspect]
     Active Substance: ALPRAZOLAM
     Indication: Anxiety
     Dosage: 0.5 MILLIGRAM, QD (0.5 MG NIGHTLY AS NEEDED BY MOUTH FOR SLEEP)
     Route: 065
  2. XANAX [Suspect]
     Active Substance: ALPRAZOLAM
     Indication: Sleep disorder
  3. IBRANCE [Concomitant]
     Active Substance: PALBOCICLIB
     Indication: Neutropenia
     Dosage: 125 MILLIGRAM, QD (TAKE 1 CAPSULE BY MOUTH DAILY) 21 DAYS ON AND 7 DAYS OFF
     Route: 048
  4. NEURONTIN [Concomitant]
     Active Substance: GABAPENTIN
     Indication: Neuropathy peripheral
     Dosage: 100 MILLIGRAM (500 MG)
     Route: 065
  5. NEURONTIN [Concomitant]
     Active Substance: GABAPENTIN
     Dosage: 300 MILLIGRAM, QD (TAKING GABAPENTIN 300 MG PO Q.H.S)
     Route: 048
  6. LETROZOLE [Concomitant]
     Active Substance: LETROZOLE
     Dosage: UNK
     Route: 065

REACTIONS (2)
  - Death [Fatal]
  - Off label use [Unknown]
